FAERS Safety Report 8714866 (Version 3)
Quarter: 2013Q1

REPORT INFORMATION
  Report Type: Spontaneous
  Country: CN (occurrence: CN)
  Receive Date: 20120809
  Receipt Date: 20130319
  Transmission Date: 20140127
  Serious: Yes (Death, Hospitalization, Other)
  Sender: FDA-Public Use
  Company Number: CN-ASTELLAS-2012US006679

PATIENT
  Age: 72 Year
  Sex: Male

DRUGS (1)
  1. TARCEVA [Suspect]
     Indication: NON-SMALL CELL LUNG CANCER
     Dosage: 150 MG, UID/QD
     Route: 048
     Dates: start: 2011

REACTIONS (6)
  - Type 2 diabetes mellitus [Unknown]
  - Hypertension [Unknown]
  - Interstitial lung disease [Fatal]
  - Metastases to lung [Unknown]
  - Lung infection [Recovering/Resolving]
  - Dermatitis [Unknown]
